FAERS Safety Report 8182193-6 (Version None)
Quarter: 2012Q1

REPORT INFORMATION
  Report Type: 
  Country: None (occurrence: None)
  Receive Date: 20120302
  Receipt Date: 20120215
  Transmission Date: 20120608
  Serious: Yes (Hospitalization)
  Sender: FDA-Public Use
  Company Number: PHHO2012DE002933

PATIENT
  Sex: Female
  Weight: 34 kg

DRUGS (8)
  1. PREDNISONE TAB [Concomitant]
     Dosage: 7.5 MG, QD
     Dates: end: 20120209
  2. HEPARIN [Concomitant]
     Indication: PROPHYLAXIS
     Dosage: UNK
     Route: 042
     Dates: start: 20120209, end: 20120210
  3. PANTOPRAZOLE [Concomitant]
     Dosage: 20 MG, UNK
     Dates: start: 20120214
  4. METHOTREXATE [Concomitant]
     Dosage: 12 MG, UNK
     Dates: end: 20120203
  5. KYBERNIN [Concomitant]
     Dosage: UNK
     Route: 042
     Dates: start: 20120204, end: 20120212
  6. IMATINIB MESYLATE [Suspect]
     Indication: ACUTE LYMPHOCYTIC LEUKAEMIA
     Dosage: 350 MG, QD
     Route: 048
     Dates: start: 20120117, end: 20120211
  7. PASPERTIN [Concomitant]
     Indication: NAUSEA
     Dosage: 10.5 MG, QD
     Dates: start: 20120201, end: 20120214
  8. PANTOPRAZOLE [Concomitant]
     Dosage: 40 MG, QD
     Route: 048
     Dates: start: 20120201, end: 20120213

REACTIONS (7)
  - HEPATOMEGALY [None]
  - CONVULSION [None]
  - PNEUMONIA [None]
  - VENOOCCLUSIVE DISEASE [None]
  - SINUS TACHYCARDIA [None]
  - OESOPHAGITIS [None]
  - ASCITES [None]
